FAERS Safety Report 6834584-0 (Version None)
Quarter: 2010Q3

REPORT INFORMATION
  Report Type: 
  Country: None (occurrence: None)
  Receive Date: 20100712
  Receipt Date: 20070625
  Transmission Date: 20110219
  Serious: No
  Sender: FDA-Public Use
  Company Number: US-PFIZER INC-2007034860

PATIENT
  Sex: Female
  Weight: 43.8 kg

DRUGS (2)
  1. CHANTIX [Suspect]
     Indication: SMOKING CESSATION THERAPY
     Dates: start: 20070401, end: 20070427
  2. CHANTIX [Suspect]
     Indication: TOBACCO ABUSE

REACTIONS (10)
  - ABDOMINAL DISCOMFORT [None]
  - ABDOMINAL DISTENSION [None]
  - ABNORMAL BEHAVIOUR [None]
  - APPETITE DISORDER [None]
  - FATIGUE [None]
  - HYPERSOMNIA [None]
  - NAUSEA [None]
  - SEDATION [None]
  - SOMNOLENCE [None]
  - WEIGHT DECREASED [None]
